FAERS Safety Report 14627594 (Version 1)
Quarter: 2018Q1

REPORT INFORMATION
  Report Type: Spontaneous
  Country: FR (occurrence: FR)
  Receive Date: 20180312
  Receipt Date: 20180312
  Transmission Date: 20180509
  Serious: Yes (Hospitalization)
  Sender: FDA-Public Use
  Company Number: FR-MYLANLABS-2018M1014819

PATIENT
  Age: 69 Year
  Sex: Female
  Weight: 53 kg

DRUGS (3)
  1. DEXAMETHASONE MYLAN [Suspect]
     Active Substance: DEXAMETHASONE
     Indication: PROPHYLAXIS OF NAUSEA AND VOMITING
     Dosage: 8 MG, TOTAL
     Route: 042
     Dates: start: 20180112, end: 20180112
  2. CHLORURE DE METHYLTHIONINIUM [Suspect]
     Active Substance: METHYLENE BLUE ANHYDROUS
     Indication: LYMPHATIC MAPPING
     Route: 042
  3. CEFAZOLINE MERCK [Suspect]
     Active Substance: CEFAZOLIN SODIUM
     Indication: INFECTION PROPHYLAXIS
     Dosage: 2 G, TOTAL
     Route: 042
     Dates: start: 20180112, end: 20180112

REACTIONS (3)
  - Hypotension [Recovered/Resolved]
  - Shock [Recovered/Resolved]
  - Oxygen saturation decreased [Recovered/Resolved]

NARRATIVE: CASE EVENT DATE: 20180112
